FAERS Safety Report 6401850-2 (Version None)
Quarter: 2009Q4

REPORT INFORMATION
  Report Type: 
  Country: None (occurrence: None)
  Receive Date: 20091015
  Receipt Date: 20091005
  Transmission Date: 20100525
  Serious: Yes (Hospitalization)
  Sender: FDA-Public Use
  Company Number: US-ELI_LILLY_AND_COMPANY-US200910001276

PATIENT
  Sex: Female
  Weight: 52.608 kg

DRUGS (6)
  1. ZYPREXA [Suspect]
     Indication: MENTAL DISORDER
     Dosage: 1 D/F, UNK
     Dates: start: 20081101, end: 20090801
  2. CLONAZEPAM [Concomitant]
     Indication: MENTAL DISORDER
     Dosage: 1 D/F, UNK
     Dates: start: 20081101
  3. DEPAKOTE [Concomitant]
     Indication: MENTAL DISORDER
     Dosage: 1 D/F, UNK
     Dates: start: 20081101, end: 20090801
  4. LISINOPRIL [Concomitant]
     Indication: HYPERTENSION
     Dosage: 5 MG, DAILY (1/D)
  5. ROSUVASTATIN [Concomitant]
     Indication: BLOOD CHOLESTEROL INCREASED
     Dosage: 5 MG, DAILY (1/D)
  6. VITAMINS NOS [Concomitant]
     Dosage: 1 D/F, DAILY (1/D)

REACTIONS (6)
  - APPENDICECTOMY [None]
  - DROOLING [None]
  - GAIT DISTURBANCE [None]
  - OFF LABEL USE [None]
  - PNEUMONIA [None]
  - TREMOR [None]
